FAERS Safety Report 21840414 (Version 1)
Quarter: 2023Q1

REPORT INFORMATION
  Report Type: Spontaneous
  Country: US (occurrence: US)
  Receive Date: 20230110
  Receipt Date: 20230110
  Transmission Date: 20230417
  Serious: No
  Sender: FDA-Public Use
  Company Number: US-drreddys-SPO/USA/22/0159011

PATIENT
  Age: 73 Year
  Sex: Female

DRUGS (12)
  1. LENALIDOMIDE [Suspect]
     Active Substance: LENALIDOMIDE
     Indication: Plasma cell myeloma
     Route: 048
     Dates: start: 20221202
  2. ACYCLOVIR TAB 800MG [Concomitant]
     Indication: Product used for unknown indication
  3. BUDESONIDE CPE 3MG [Concomitant]
     Indication: Product used for unknown indication
  4. CALCIUM + D3 TAB 600-800M [Concomitant]
     Indication: Product used for unknown indication
     Dosage: 600-800M
  5. DULOXETINE H CPE 60MG [Concomitant]
     Indication: Product used for unknown indication
  6. ELIQUIS [Concomitant]
     Active Substance: APIXABAN
     Indication: Product used for unknown indication
  7. GABAPENTIN CAP 100MG [Concomitant]
     Indication: Product used for unknown indication
  8. LEVOTHYROXIN TAB 50MCG [Concomitant]
     Indication: Product used for unknown indication
  9. MACULAR HEAL CAP [Concomitant]
     Indication: Product used for unknown indication
  10. PROCHLORPERA TAB 10MG [Concomitant]
     Indication: Product used for unknown indication
  11. VITAMIN B 12 LOZ 250MCG [Concomitant]
     Indication: Product used for unknown indication
  12. ZOLEDRONIC A CON 4MG/5ML [Concomitant]
     Indication: Product used for unknown indication
     Dosage: 4MG/5ML

REACTIONS (1)
  - Product dose omission issue [Unknown]
